FAERS Safety Report 9901290 (Version 1)
Quarter: 2014Q1

REPORT INFORMATION
  Report Type: Spontaneous
  Country: DE (occurrence: DE)
  Receive Date: 20140217
  Receipt Date: 20140217
  Transmission Date: 20141002
  Serious: Yes (Other)
  Sender: FDA-Public Use
  Company Number: DE-ABBVIE-14P-062-1201714-00

PATIENT
  Sex: Female

DRUGS (2)
  1. ZEMPLAR [Suspect]
     Indication: HYPERPARATHYROIDISM SECONDARY
     Dosage: 1 AMPOULE PER DIALYSIS
  2. MIMPARA [Concomitant]
     Indication: HYPERPARATHYROIDISM SECONDARY

REACTIONS (3)
  - Calciphylaxis [Not Recovered/Not Resolved]
  - Hypercalcaemia [Not Recovered/Not Resolved]
  - Hyperphosphataemia [Not Recovered/Not Resolved]
